FAERS Safety Report 15849175 (Version 1)
Quarter: 2019Q1

REPORT INFORMATION
  Report Type: Spontaneous
  Country: FR (occurrence: FR)
  Receive Date: 20190121
  Receipt Date: 20190121
  Transmission Date: 20190417
  Serious: Yes (Hospitalization)
  Sender: FDA-Public Use
  Company Number: FR-MYLANLABS-2019M1003905

PATIENT
  Age: 68 Year
  Sex: Female
  Weight: 57 kg

DRUGS (1)
  1. FLUVASTATIN [Suspect]
     Active Substance: FLUVASTATIN SODIUM
     Indication: HYPERCHOLESTEROLAEMIA
     Dosage: 1 MILLIGRAM
     Dates: end: 20180607

REACTIONS (4)
  - Diarrhoea [Recovering/Resolving]
  - Cell death [Recovering/Resolving]
  - Cholestasis [Recovering/Resolving]
  - Abdominal pain [Recovering/Resolving]

NARRATIVE: CASE EVENT DATE: 20180608
